FAERS Safety Report 24126148 (Version 1)
Quarter: 2024Q3

REPORT INFORMATION
  Report Type: Spontaneous
  Country: US (occurrence: None)
  Receive Date: 20240721
  Receipt Date: 20240721
  Transmission Date: 20241017
  Serious: Yes (Disabling)
  Sender: Public
  Company Number: None

PATIENT
  Age: 46 Year
  Sex: Female
  Weight: 63 kg

DRUGS (1)
  1. UPNEEQ [Suspect]
     Active Substance: OXYMETAZOLINE HYDROCHLORIDE
     Indication: Eyelid ptosis
     Dosage: OTHER QUANTITY : 1 DROP(S);?FREQUENCY : AS NEEDED;?
     Route: 047
     Dates: start: 20211201, end: 20230201

REACTIONS (1)
  - Dry eye [None]

NARRATIVE: CASE EVENT DATE: 20221201
